FAERS Safety Report 8107724-3 (Version None)
Quarter: 2012Q1

REPORT INFORMATION
  Report Type: 
  Country: None (occurrence: None)
  Receive Date: 20120202
  Receipt Date: 20120124
  Transmission Date: 20120608
  Serious: Yes (Hospitalization, Other)
  Sender: FDA-Public Use
  Company Number: CA-JNJFOC-20120100180

PATIENT
  Sex: Female
  Weight: 65.77 kg

DRUGS (4)
  1. LEVAQUIN [Suspect]
     Indication: PNEUMONIA
     Route: 065
     Dates: start: 20111224
  2. ACETAMINOPHEN [Suspect]
     Route: 065
  3. CODEINE SULFATE [Suspect]
     Indication: PNEUMONIA
     Route: 065
     Dates: start: 20111224
  4. ACETAMINOPHEN [Suspect]
     Indication: PNEUMONIA
     Route: 065
     Dates: start: 20111224

REACTIONS (6)
  - VISUAL IMPAIRMENT [None]
  - HEADACHE [None]
  - TACHYCARDIA [None]
  - FLUSHING [None]
  - CHEST PAIN [None]
  - HYPERTENSION [None]
